FAERS Safety Report 9042246 (Version 1)
Quarter: 2013Q1

REPORT INFORMATION
  Report Type: Report from Study
  Country: US (occurrence: US)
  Receive Date: 20130129
  Receipt Date: 20130129
  Transmission Date: 20140127
  Serious: No
  Sender: FDA-Public Use
  Company Number: US-ABBOTT-12P-163-0906641-00

PATIENT
  Sex: Female
  Weight: 54.48 kg

DRUGS (5)
  1. HUMIRA 40 MG/0.8 ML PEN [Suspect]
     Indication: CROHN^S DISEASE
     Dates: start: 2007
  2. PREVACID [Concomitant]
     Indication: GASTROOESOPHAGEAL REFLUX DISEASE
  3. CALCIUM [Concomitant]
     Indication: MINERAL SUPPLEMENTATION
  4. IRON [Concomitant]
     Indication: MINERAL SUPPLEMENTATION
     Dates: start: 201110
  5. VITAMIN D [Concomitant]
     Indication: VITAMIN SUPPLEMENTATION

REACTIONS (5)
  - Crohn^s disease [Recovered/Resolved]
  - Pain in extremity [Recovered/Resolved]
  - Skin discolouration [Recovered/Resolved]
  - Anaemia [Recovering/Resolving]
  - Thrombosis [Recovered/Resolved]
